FAERS Safety Report 10414725 (Version 1)
Quarter: 2014Q3

REPORT INFORMATION
  Report Type: Spontaneous
  Country: US (occurrence: US)
  Receive Date: 20140828
  Receipt Date: 20140828
  Transmission Date: 20150326
  Serious: No
  Sender: FDA-Public Use
  Company Number: US-SHIRE-US201405356

PATIENT
  Sex: Female
  Weight: 48.98 kg

DRUGS (3)
  1. LIALDA [Suspect]
     Active Substance: MESALAMINE
     Indication: COLITIS ULCERATIVE
     Dosage: 4.8 G, UNKNOWN (PER DAY)
     Route: 048
     Dates: start: 20140725
  2. LIALDA [Suspect]
     Active Substance: MESALAMINE
     Dosage: 2.4 G(2 TABS IN THE MORNING AND 2 TABS IN THE AFTERNOON), 2X/DAY:BID
     Route: 048
     Dates: start: 201408
  3. PRENATAL VITAMINS                  /07499601/ [Concomitant]
     Indication: PREGNANCY
     Dosage: UNK, UNKNOWN
     Route: 065

REACTIONS (3)
  - Exposure during pregnancy [Not Recovered/Not Resolved]
  - Medication residue present [Unknown]
  - Inappropriate schedule of drug administration [Not Recovered/Not Resolved]

NARRATIVE: CASE EVENT DATE: 2014
